FAERS Safety Report 25373067 (Version 1)
Quarter: 2025Q2

REPORT INFORMATION
  Report Type: Spontaneous
  Country: SE (occurrence: SE)
  Receive Date: 20250529
  Receipt Date: 20250529
  Transmission Date: 20250716
  Serious: Yes (Hospitalization, Other)
  Sender: MYLAN
  Company Number: SE-MYLANLABS-2025M1044858

PATIENT
  Age: 15 Year
  Sex: Female

DRUGS (56)
  1. ARIPIPRAZOLE [Suspect]
     Active Substance: ARIPIPRAZOLE
     Indication: Depression
  2. ARIPIPRAZOLE [Suspect]
     Active Substance: ARIPIPRAZOLE
     Route: 065
  3. ARIPIPRAZOLE [Suspect]
     Active Substance: ARIPIPRAZOLE
     Route: 065
  4. ARIPIPRAZOLE [Suspect]
     Active Substance: ARIPIPRAZOLE
  5. SERTRALINE [Suspect]
     Active Substance: SERTRALINE HYDROCHLORIDE
     Indication: Depression
     Dosage: 25 MILLIGRAM, QD
  6. SERTRALINE [Suspect]
     Active Substance: SERTRALINE HYDROCHLORIDE
     Dosage: 25 MILLIGRAM, QD
     Route: 065
  7. SERTRALINE [Suspect]
     Active Substance: SERTRALINE HYDROCHLORIDE
     Dosage: 25 MILLIGRAM, QD
     Route: 065
  8. SERTRALINE [Suspect]
     Active Substance: SERTRALINE HYDROCHLORIDE
     Dosage: 25 MILLIGRAM, QD
  9. RISPERIDONE [Suspect]
     Active Substance: RISPERIDONE
     Indication: Depression
     Dosage: 0.5 MILLIGRAM, QD
  10. RISPERIDONE [Suspect]
     Active Substance: RISPERIDONE
     Dosage: 0.5 MILLIGRAM, QD
     Route: 065
  11. RISPERIDONE [Suspect]
     Active Substance: RISPERIDONE
     Dosage: 0.5 MILLIGRAM, QD
     Route: 065
  12. RISPERIDONE [Suspect]
     Active Substance: RISPERIDONE
     Dosage: 0.5 MILLIGRAM, QD
  13. RISPERIDONE [Suspect]
     Active Substance: RISPERIDONE
     Route: 065
  14. RISPERIDONE [Suspect]
     Active Substance: RISPERIDONE
     Route: 065
  15. RISPERIDONE [Suspect]
     Active Substance: RISPERIDONE
  16. RISPERIDONE [Suspect]
     Active Substance: RISPERIDONE
  17. RISPERIDONE [Suspect]
     Active Substance: RISPERIDONE
     Dosage: 4 MILLIGRAM, QD
  18. RISPERIDONE [Suspect]
     Active Substance: RISPERIDONE
     Dosage: 4 MILLIGRAM, QD
     Route: 065
  19. RISPERIDONE [Suspect]
     Active Substance: RISPERIDONE
     Dosage: 4 MILLIGRAM, QD
  20. RISPERIDONE [Suspect]
     Active Substance: RISPERIDONE
     Dosage: 4 MILLIGRAM, QD
     Route: 065
  21. FLUOXETINE [Suspect]
     Active Substance: FLUOXETINE HYDROCHLORIDE
     Indication: Anxiety
  22. FLUOXETINE [Suspect]
     Active Substance: FLUOXETINE HYDROCHLORIDE
     Route: 065
  23. FLUOXETINE [Suspect]
     Active Substance: FLUOXETINE HYDROCHLORIDE
     Route: 065
  24. FLUOXETINE [Suspect]
     Active Substance: FLUOXETINE HYDROCHLORIDE
  25. PROMETHAZINE [Suspect]
     Active Substance: PROMETHAZINE HYDROCHLORIDE
     Indication: Sleep disorder
  26. PROMETHAZINE [Suspect]
     Active Substance: PROMETHAZINE HYDROCHLORIDE
     Route: 065
  27. PROMETHAZINE [Suspect]
     Active Substance: PROMETHAZINE HYDROCHLORIDE
     Route: 065
  28. PROMETHAZINE [Suspect]
     Active Substance: PROMETHAZINE HYDROCHLORIDE
  29. MELATONIN [Suspect]
     Active Substance: MELATONIN
     Indication: Depression
  30. MELATONIN [Suspect]
     Active Substance: MELATONIN
     Route: 065
  31. MELATONIN [Suspect]
     Active Substance: MELATONIN
     Route: 065
  32. MELATONIN [Suspect]
     Active Substance: MELATONIN
  33. PROPIOMAZINE [Suspect]
     Active Substance: PROPIOMAZINE
     Indication: Sleep disorder
  34. PROPIOMAZINE [Suspect]
     Active Substance: PROPIOMAZINE
     Route: 065
  35. PROPIOMAZINE [Suspect]
     Active Substance: PROPIOMAZINE
     Route: 065
  36. PROPIOMAZINE [Suspect]
     Active Substance: PROPIOMAZINE
  37. OLANZAPINE [Concomitant]
     Active Substance: OLANZAPINE
     Indication: Depression
  38. OLANZAPINE [Concomitant]
     Active Substance: OLANZAPINE
     Route: 065
  39. OLANZAPINE [Concomitant]
     Active Substance: OLANZAPINE
     Route: 065
  40. OLANZAPINE [Concomitant]
     Active Substance: OLANZAPINE
  41. LAMOTRIGINE [Concomitant]
     Active Substance: LAMOTRIGINE
     Indication: Bipolar II disorder
     Dosage: 25 MILLIGRAM, QD
  42. LAMOTRIGINE [Concomitant]
     Active Substance: LAMOTRIGINE
     Dosage: 25 MILLIGRAM, QD
  43. LAMOTRIGINE [Concomitant]
     Active Substance: LAMOTRIGINE
     Dosage: 25 MILLIGRAM, QD
     Route: 065
  44. LAMOTRIGINE [Concomitant]
     Active Substance: LAMOTRIGINE
     Dosage: 25 MILLIGRAM, QD
     Route: 065
  45. LAMOTRIGINE [Concomitant]
     Active Substance: LAMOTRIGINE
     Dosage: 25 MILLIGRAM, Q2W
  46. LAMOTRIGINE [Concomitant]
     Active Substance: LAMOTRIGINE
     Dosage: 25 MILLIGRAM, Q2W
  47. LAMOTRIGINE [Concomitant]
     Active Substance: LAMOTRIGINE
     Dosage: 25 MILLIGRAM, Q2W
     Route: 065
  48. LAMOTRIGINE [Concomitant]
     Active Substance: LAMOTRIGINE
     Dosage: 25 MILLIGRAM, Q2W
     Route: 065
  49. LAMOTRIGINE [Concomitant]
     Active Substance: LAMOTRIGINE
  50. LAMOTRIGINE [Concomitant]
     Active Substance: LAMOTRIGINE
     Route: 065
  51. LAMOTRIGINE [Concomitant]
     Active Substance: LAMOTRIGINE
  52. LAMOTRIGINE [Concomitant]
     Active Substance: LAMOTRIGINE
     Route: 065
  53. INSULIN NOS [Concomitant]
     Active Substance: INSULIN NOS
     Indication: Type 1 diabetes mellitus
  54. INSULIN NOS [Concomitant]
     Active Substance: INSULIN NOS
     Route: 065
  55. INSULIN NOS [Concomitant]
     Active Substance: INSULIN NOS
     Route: 065
  56. INSULIN NOS [Concomitant]
     Active Substance: INSULIN NOS

REACTIONS (5)
  - Drug ineffective [Unknown]
  - Suicidal ideation [Recovered/Resolved]
  - Sedation [Recovered/Resolved]
  - Somnolence [Recovered/Resolved]
  - Psychomotor hyperactivity [Unknown]
